FAERS Safety Report 11540507 (Version 1)
Quarter: 2015Q3

REPORT INFORMATION
  Report Type: Spontaneous
  Country: US (occurrence: US)
  Receive Date: 20150923
  Receipt Date: 20150923
  Transmission Date: 20151125
  Serious: No
  Sender: FDA-Public Use
  Company Number: US-BEH-2015048617

PATIENT
  Age: 25 Year
  Sex: Female
  Weight: 148 kg

DRUGS (3)
  1. APAP [Concomitant]
     Active Substance: ACETAMINOPHEN
     Dosage: 1000 MG PRIOR TO INFUSIONS
  2. PRIVIGEN [Suspect]
     Active Substance: HUMAN IMMUNOGLOBULIN G
     Indication: IMMUNODEFICIENCY COMMON VARIABLE
     Dosage: 20 GM:DOSING PERIOD: 08NOV2014 TO CURRENT
     Route: 042
     Dates: start: 20150131
  3. DIPHENHYDRAMINE. [Concomitant]
     Active Substance: DIPHENHYDRAMINE
     Dosage: 50 MG PRIOR TO INFUSIONS

REACTIONS (2)
  - Pyrexia [Recovered/Resolved]
  - Vomiting [Recovered/Resolved]

NARRATIVE: CASE EVENT DATE: 20150131
